FAERS Safety Report 13336698 (Version 1)
Quarter: 2017Q1

REPORT INFORMATION
  Report Type: Spontaneous
  Country: US (occurrence: US)
  Receive Date: 20170315
  Receipt Date: 20170315
  Transmission Date: 20170428
  Serious: No
  Sender: FDA-Public Use
  Company Number: US-BAYER-2017-047221

PATIENT

DRUGS (1)
  1. MIDOL EXTENDED RELIEF [Suspect]
     Active Substance: NAPROXEN SODIUM
     Indication: MUSCLE SPASMS
     Dosage: UNK

REACTIONS (7)
  - Analgesic therapy [None]
  - Product use issue [None]
  - Insomnia [Unknown]
  - Palpitations [Unknown]
  - Feeling jittery [Unknown]
  - Paranoia [Unknown]
  - Nausea [Unknown]
